FAERS Safety Report 4469791-8 (Version None)
Quarter: 2004Q4

REPORT INFORMATION
  Report Type: 
  Country: None (occurrence: None)
  Receive Date: 20041008
  Receipt Date: 20040930
  Transmission Date: 20050328
  Serious: Yes (Other)
  Sender: FDA-Public Use
  Company Number: US-ROCHE-382035

PATIENT
  Age: 65 Year
  Sex: Female

DRUGS (4)
  1. XENICAL [Suspect]
     Indication: OBESITY
     Route: 048
     Dates: start: 20040915
  2. GLIPIZIDE [Concomitant]
     Route: 048
  3. AVANDAMET [Concomitant]
     Route: 048
  4. VERAPAMIL [Concomitant]
     Indication: MIGRAINE
     Route: 065

REACTIONS (2)
  - DIARRHOEA [None]
  - HYPOGLYCAEMIA [None]
